FAERS Safety Report 8236687-5 (Version None)
Quarter: 2012Q1

REPORT INFORMATION
  Report Type: 
  Country: None (occurrence: None)
  Receive Date: 20120309
  Receipt Date: 20110204
  Transmission Date: 20120608
  Serious: Yes (Other)
  Sender: FDA-Public Use
  Company Number: PHHY2011US03071

PATIENT
  Age: 30 Year
  Sex: Male

DRUGS (2)
  1. EXTAVIA [Suspect]
     Indication: MULTIPLE SCLEROSIS
     Dosage: 0.062 MG, QOD, SUBCUTANEOUS, 0.125 MG, QOD, SUBCUTANEOUS, 0.5 ML, QOD, SUBCUTANEOUS
     Route: 058
     Dates: start: 20110105
  2. EXTAVIA [Suspect]
     Indication: MULTIPLE SCLEROSIS
     Dosage: 0.062 MG, QOD, SUBCUTANEOUS, 0.125 MG, QOD, SUBCUTANEOUS, 0.5 ML, QOD, SUBCUTANEOUS
     Route: 058
     Dates: end: 20110123

REACTIONS (5)
  - DEPRESSION [None]
  - SOMNOLENCE [None]
  - NASOPHARYNGITIS [None]
  - DEPRESSED MOOD [None]
  - INFLUENZA LIKE ILLNESS [None]
